FAERS Safety Report 19660205 (Version 1)
Quarter: 2021Q3

REPORT INFORMATION
  Report Type: Spontaneous
  Country: US (occurrence: US)
  Receive Date: 20210805
  Receipt Date: 20210805
  Transmission Date: 20211014
  Serious: Yes (Other)
  Sender: FDA-Public Use
  Company Number: US-AUROBINDO-AUR-APL-2021-033013

PATIENT
  Sex: Female
  Weight: 1.5 kg

DRUGS (8)
  1. VANCOMYCIN [Concomitant]
     Active Substance: VANCOMYCIN
     Indication: PRODUCT USED FOR UNKNOWN INDICATION
     Dosage: UNK
     Route: 065
  2. RIFAMPIN. [Suspect]
     Active Substance: RIFAMPIN
     Indication: STAPHYLOCOCCAL INFECTION
     Dosage: 10 MILLIGRAM/KILOGRAM, DAILY DIVIDED EVERY 12 HOURS
     Route: 065
  3. GENTAMICIN. [Concomitant]
     Active Substance: GENTAMICIN
     Indication: PRODUCT USED FOR UNKNOWN INDICATION
     Dosage: UNK
     Route: 065
  4. NAFCILLIN [Suspect]
     Active Substance: NAFCILLIN SODIUM
     Indication: STAPHYLOCOCCAL INFECTION
     Dosage: 50 MILLIGRAM/KILOGRAM, DAILY DIVIDED EVERY 12 HOURS
     Route: 065
  5. AMPICILLIN [Concomitant]
     Active Substance: AMPICILLIN
     Indication: PRODUCT USED FOR UNKNOWN INDICATION
     Dosage: UNK
     Route: 065
  6. NITRIC OXIDE. [Concomitant]
     Active Substance: NITRIC OXIDE
     Indication: RESPIRATORY FAILURE
     Dosage: UNK
  7. NAFCILLIN [Suspect]
     Active Substance: NAFCILLIN SODIUM
     Dosage: 99 MILLIGRAM/KILOGRAM, DAILY DIVIDED EVERY 8 HOURS
     Route: 065
  8. NAFCILLIN [Suspect]
     Active Substance: NAFCILLIN SODIUM
     Dosage: 200 MILLIGRAM/KILOGRAM, DAILY DIVIDED EVERY 8 HRS
     Route: 065

REACTIONS (1)
  - Drug ineffective [Unknown]
